FAERS Safety Report 4960156-9 (Version None)
Quarter: 2006Q1

REPORT INFORMATION
  Report Type: 
  Country: None (occurrence: None)
  Receive Date: 20060331
  Receipt Date: 20060322
  Transmission Date: 20060701
  Serious: Yes (Hospitalization)
  Sender: FDA-Public Use
  Company Number: DE-ABBOTT-06P-062-0328867-00

PATIENT
  Sex: Female
  Weight: 45 kg

DRUGS (2)
  1. ZEMPLAR [Suspect]
     Indication: HYPERPARATHYROIDISM SECONDARY
     Route: 042
     Dates: start: 20060131
  2. MINPARA 60 [Concomitant]
     Indication: HYPERPARATHYROIDISM SECONDARY
     Route: 048

REACTIONS (2)
  - CARDIAC FAILURE [None]
  - PULMONARY OEDEMA [None]
